FAERS Safety Report 22687839 (Version 5)
Quarter: 2024Q1

REPORT INFORMATION
  Report Type: Spontaneous
  Country: US (occurrence: US)
  Receive Date: 20230710
  Receipt Date: 20240119
  Transmission Date: 20240410
  Serious: No
  Sender: FDA-Public Use
  Company Number: US-PFIZER INC-PV202300118363

PATIENT
  Age: 80 Year
  Sex: Female

DRUGS (1)
  1. IBRANCE [Suspect]
     Active Substance: PALBOCICLIB
     Dosage: 125 MG

REACTIONS (7)
  - Hypoacusis [Unknown]
  - Nasal dryness [Unknown]
  - Rhinorrhoea [Unknown]
  - Epistaxis [Unknown]
  - Alopecia [Unknown]
  - White blood cell count decreased [Unknown]
  - Anxiety [Unknown]
